FAERS Safety Report 19924983 (Version 2)
Quarter: 2021Q4

REPORT INFORMATION
  Report Type: Spontaneous
  Country: US (occurrence: US)
  Receive Date: 20211006
  Receipt Date: 20211102
  Transmission Date: 20220303
  Serious: Yes (Other)
  Sender: FDA-Public Use
  Company Number: US-ORGANON-O2110USA000240

PATIENT
  Sex: Female
  Weight: 149.66 kg

DRUGS (1)
  1. NEXPLANON [Suspect]
     Active Substance: ETONOGESTREL
     Indication: Contraception
     Dosage: 1 IMPLANT (DOSE/ FREQUENCY: 68 MG), LEFT ARM
     Route: 059
     Dates: start: 20210721, end: 20210929

REACTIONS (7)
  - Device dislocation [Recovered/Resolved]
  - Implant site infection [Recovering/Resolving]
  - Keloid scar [Recovering/Resolving]
  - Implant site scar [Recovering/Resolving]
  - Implant site pain [Recovering/Resolving]
  - Implant site fibrosis [Unknown]
  - Device expulsion [Recovered/Resolved]

NARRATIVE: CASE EVENT DATE: 20210101
